FAERS Safety Report 11422136 (Version 1)
Quarter: 2015Q3

REPORT INFORMATION
  Report Type: Spontaneous
  Country: BR (occurrence: None)
  Receive Date: 20150825
  Receipt Date: 20150825
  Transmission Date: 20151125
  Serious: Yes (Life-Threatening, Hospitalization, Other)
  Sender: FDA-Public Use
  Company Number: BR-TORRENT-00003055

PATIENT
  Age: 25 Year
  Sex: Female

DRUGS (3)
  1. CLONAZEPAM. [Concomitant]
     Active Substance: CLONAZEPAM
  2. FLUOXETINE [Concomitant]
     Active Substance: FLUOXETINE\FLUOXETINE HYDROCHLORIDE
  3. LAMITOR (INN:LAMOTRIGINE) [Suspect]
     Active Substance: LAMOTRIGINE
     Indication: SEIZURE
     Dosage: LAMITOR 50 MG TWICE IN THE MORNING AND TWICE AT NIGHT/ ORAL
     Route: 048
     Dates: start: 201505, end: 20150809

REACTIONS (12)
  - Blood pressure increased [None]
  - Nausea [None]
  - Vomiting [None]
  - Hepatic pain [None]
  - Dysuria [None]
  - Renal pain [None]
  - Intentional overdose [None]
  - Suicide attempt [None]
  - Loss of consciousness [None]
  - Abdominal pain [None]
  - Hypoaesthesia [None]
  - Headache [None]

NARRATIVE: CASE EVENT DATE: 20150811
